FAERS Safety Report 4507628-9 (Version None)
Quarter: 2004Q4

REPORT INFORMATION
  Report Type: 
  Country: None (occurrence: None)
  Receive Date: 20041123
  Receipt Date: 20041112
  Transmission Date: 20050328
  Serious: Yes (Hospitalization)
  Sender: FDA-Public Use
  Company Number: US-BRISTOL-MYERS SQUIBB COMPANY-12764874

PATIENT
  Age: 60 Year
  Sex: Male
  Weight: 64 kg

DRUGS (10)
  1. PACLITAXEL [Suspect]
     Indication: LIPOSARCOMA METASTATIC
     Dosage: THERAPY DATES/DURATION:23-OCT-2003-STOPPED. 02-SEP-2004-STOPPED.
     Dates: start: 20040902, end: 20040902
  2. ECTEINASCIDIN-743 [Suspect]
     Dosage: LYOPHILIZED POWDER-CYCLE 19 WAS ADMINISTERED ON 02-SEP-2004.
     Route: 042
     Dates: start: 20040903, end: 20040903
  3. COUMADIN [Suspect]
  4. HYDROCODONE [Concomitant]
  5. DOCUSATE SODIUM [Concomitant]
     Indication: CONSTIPATION
  6. MARINOL [Concomitant]
  7. EFFEXOR [Concomitant]
  8. SENOKOT [Concomitant]
  9. VITAMIN [Concomitant]
  10. ZOFRAN [Concomitant]
     Indication: NAUSEA

REACTIONS (4)
  - GASTROINTESTINAL HAEMORRHAGE [None]
  - HAEMATEMESIS [None]
  - HAEMOGLOBIN DECREASED [None]
  - MELAENA [None]
